FAERS Safety Report 16074180 (Version 1)
Quarter: 2019Q1

REPORT INFORMATION
  Report Type: Report from Study
  Country: RU (occurrence: RU)
  Receive Date: 20190314
  Receipt Date: 20190314
  Transmission Date: 20190418
  Serious: Yes (Hospitalization, Other)
  Sender: FDA-Public Use
  Company Number: RU-ASTRAZENECA-2019SE25260

PATIENT
  Age: 41 Year
  Sex: Male
  Weight: 130 kg

DRUGS (10)
  1. BRILINTA [Suspect]
     Active Substance: TICAGRELOR
     Indication: STENT PLACEMENT
     Route: 048
     Dates: start: 201812
  2. APHOBAZOLUM [Concomitant]
  3. METFORMIN [Concomitant]
     Active Substance: METFORMIN HYDROCHLORIDE
  4. FORXIGA [Suspect]
     Active Substance: DAPAGLIFLOZIN
     Indication: TYPE 2 DIABETES MELLITUS
     Route: 048
     Dates: start: 201901
  5. NIPERTEN [Concomitant]
  6. CARDIOMAGNIL [Concomitant]
  7. NAPROXEN. [Concomitant]
     Active Substance: NAPROXEN
  8. RABEPRAZOLE [Concomitant]
     Active Substance: RABEPRAZOLE
  9. TRICOR [Concomitant]
     Active Substance: FENOFIBRATE
  10. DIABETON [Concomitant]
     Active Substance: GLICLAZIDE

REACTIONS (5)
  - Cardiac disorder [Not Recovered/Not Resolved]
  - Contusion [Not Recovered/Not Resolved]
  - Proteinuria [Not Recovered/Not Resolved]
  - Blood pressure increased [Not Recovered/Not Resolved]
  - Anxiety [Not Recovered/Not Resolved]

NARRATIVE: CASE EVENT DATE: 201812
